FAERS Safety Report 14374519 (Version 2)
Quarter: 2018Q2

REPORT INFORMATION
  Report Type: Report from Study
  Country: None (occurrence: US)
  Receive Date: 20180111
  Receipt Date: 20180426
  Transmission Date: 20180711
  Serious: Yes (Other)
  Sender: FDA-Public Use
  Company Number: US-ABBVIE-18K-163-2217728-00

PATIENT
  Sex: Female

DRUGS (2)
  1. HUMIRA [Suspect]
     Active Substance: ADALIMUMAB
     Indication: PSORIATIC ARTHROPATHY
     Route: 058
  2. HUMIRA [Suspect]
     Active Substance: ADALIMUMAB
     Indication: PSORIASIS

REACTIONS (7)
  - Inflammatory marker increased [Unknown]
  - Osteoarthritis [Unknown]
  - Cholelithiasis [Unknown]
  - Systemic lupus erythematosus [Unknown]
  - Spinal operation [Unknown]
  - Nephrolithiasis [Unknown]
  - Intervertebral disc protrusion [Unknown]
